FAERS Safety Report 23949007 (Version 1)
Quarter: 2024Q2

REPORT INFORMATION
  Report Type: Spontaneous
  Country: US (occurrence: US)
  Receive Date: 20240607
  Receipt Date: 20240607
  Transmission Date: 20240716
  Serious: No
  Sender: FDA-Public Use
  Company Number: US-TARO PHARMACEUTICALS USA INC.-2023TAR01190

PATIENT

DRUGS (1)
  1. IMIQUIMOD [Suspect]
     Active Substance: IMIQUIMOD
     Indication: Anogenital warts
     Dosage: UNK, TOPICAL TO GENITALS, USED FOR 6 WEEKS MONDAY THROUGH FRIDAY AND USED 2 PACKS A WEEK FOR A TOTAL
     Route: 061
     Dates: start: 20230301

REACTIONS (7)
  - Skin discolouration [Not Recovered/Not Resolved]
  - Dry throat [Not Recovered/Not Resolved]
  - Memory impairment [Not Recovered/Not Resolved]
  - Application site irritation [Recovered/Resolved]
  - Application site pain [Unknown]
  - Erythema [Not Recovered/Not Resolved]
  - Headache [Not Recovered/Not Resolved]
